FAERS Safety Report 25024887 (Version 1)
Quarter: 2025Q1

REPORT INFORMATION
  Report Type: Spontaneous
  Country: CN (occurrence: CN)
  Receive Date: 20250228
  Receipt Date: 20250228
  Transmission Date: 20250408
  Serious: Yes (Other)
  Sender: BAXTER
  Company Number: None

PATIENT
  Age: 61 Year
  Sex: Female
  Weight: 55 kg

DRUGS (5)
  1. IFOSFAMIDE [Suspect]
     Active Substance: IFOSFAMIDE
     Indication: Malignant connective tissue neoplasm
     Route: 041
     Dates: start: 20250214, end: 20250217
  2. IFOSFAMIDE [Suspect]
     Active Substance: IFOSFAMIDE
     Indication: Soft tissue sarcoma
  3. IFOSFAMIDE [Suspect]
     Active Substance: IFOSFAMIDE
     Indication: Lymphadenopathy
  4. IFOSFAMIDE [Suspect]
     Active Substance: IFOSFAMIDE
     Indication: Metastases to lymph nodes
  5. IFOSFAMIDE [Suspect]
     Active Substance: IFOSFAMIDE
     Indication: Undifferentiated sarcoma

REACTIONS (8)
  - Neurotoxicity [Recovering/Resolving]
  - Dizziness [Recovered/Resolved]
  - Discomfort [Recovered/Resolved]
  - Muscular weakness [Recovering/Resolving]
  - Anal incontinence [Recovering/Resolving]
  - Urinary incontinence [Recovering/Resolving]
  - Mental impairment [Recovering/Resolving]
  - Cerebral infarction [Recovering/Resolving]

NARRATIVE: CASE EVENT DATE: 20250216
